FAERS Safety Report 15189606 (Version 7)
Quarter: 2020Q4

REPORT INFORMATION
  Report Type: Report from Study
  Country: US (occurrence: US)
  Receive Date: 20180724
  Receipt Date: 20201102
  Transmission Date: 20210113
  Serious: Yes (Other)
  Sender: FDA-Public Use
  Company Number: PHEH2018US030155

PATIENT
  Age: 51 Year
  Sex: Male

DRUGS (1)
  1. GILENYA [Suspect]
     Active Substance: FINGOLIMOD HYDROCHLORIDE
     Indication: MULTIPLE SCLEROSIS
     Dosage: 0.5 MG, QD
     Route: 048
     Dates: start: 20180716

REACTIONS (14)
  - Decreased interest [Unknown]
  - Cough [Unknown]
  - Balance disorder [Unknown]
  - Abdominal pain upper [Unknown]
  - Fatigue [Unknown]
  - Depression [Unknown]
  - Fall [Unknown]
  - Multiple sclerosis [Unknown]
  - Photophobia [Unknown]
  - Pain in extremity [Unknown]
  - Multiple sclerosis relapse [Unknown]
  - Back pain [Unknown]
  - Burning sensation [Unknown]
  - Constipation [Unknown]

NARRATIVE: CASE EVENT DATE: 20180716
